FAERS Safety Report 22238428 (Version 1)
Quarter: 2023Q2

REPORT INFORMATION
  Report Type: Report from Study
  Country: US (occurrence: US)
  Receive Date: 20230421
  Receipt Date: 20230421
  Transmission Date: 20230722
  Serious: Yes (Hospitalization, Other)
  Sender: FDA-Public Use
  Company Number: US-ABBVIE-4283287

PATIENT
  Sex: Female

DRUGS (3)
  1. HUMIRA [Suspect]
     Active Substance: ADALIMUMAB
     Indication: Rheumatoid arthritis
     Dosage: FORM STRENGTH 40 MG CITRATE FREE
     Route: 058
     Dates: start: 202210
  2. HUMIRA [Suspect]
     Active Substance: ADALIMUMAB
     Dosage: FORM STRENGTH 40 MG CITRATE FREE
     Route: 058
  3. HYDROXYCHLOROQUINE [Suspect]
     Active Substance: HYDROXYCHLOROQUINE
     Indication: Product used for unknown indication
     Dosage: FORM STRENGTH 200 MG
     Route: 065

REACTIONS (10)
  - Clavicle fracture [Not Recovered/Not Resolved]
  - Pain [Recovered/Resolved]
  - Amnesia [Not Recovered/Not Resolved]
  - Blood urine present [Recovered/Resolved]
  - Fall [Recovered/Resolved]
  - Wound [Recovering/Resolving]
  - Throat irritation [Not Recovered/Not Resolved]
  - Limb injury [Unknown]
  - Hand fracture [Recovering/Resolving]
  - Memory impairment [Not Recovered/Not Resolved]

NARRATIVE: CASE EVENT DATE: 20230101
